FAERS Safety Report 5114492-6 (Version None)
Quarter: 2006Q3

REPORT INFORMATION
  Report Type: 
  Country: None (occurrence: None)
  Receive Date: 20060926
  Receipt Date: 20060914
  Transmission Date: 20061208
  Serious: Yes (Disabling)
  Sender: FDA-Public Use
  Company Number: FI-SOLVAY-00306003068

PATIENT
  Age: 17926 Day
  Sex: Male

DRUGS (1)
  1. TESTOSTERONE [Suspect]
     Indication: LIBIDO DISORDER
     Dosage: DAILY DOSE:  UNKNOWN
     Route: 062
     Dates: start: 20060101, end: 20060301

REACTIONS (1)
  - SPERMATOZOA ABNORMAL [None]
